FAERS Safety Report 20895308 (Version 1)
Quarter: 2022Q2

REPORT INFORMATION
  Report Type: Spontaneous
  Country: US (occurrence: None)
  Receive Date: 20220528
  Receipt Date: 20220528
  Transmission Date: 20220721
  Serious: No
  Sender: FDA-Public Use
  Company Number: None

PATIENT
  Age: 59 Year
  Sex: Female
  Weight: 81 kg

DRUGS (13)
  1. OCREVUS [Suspect]
     Active Substance: OCRELIZUMAB
     Indication: Multiple sclerosis
     Route: 042
     Dates: start: 20191219, end: 20210626
  2. AUBAGIO [Concomitant]
     Active Substance: TERIFLUNOMIDE
  3. AMLODIPINE BESYLATE [Concomitant]
     Active Substance: AMLODIPINE BESYLATE
  4. SIMVASTATIN [Concomitant]
     Active Substance: SIMVASTATIN
  5. MYRBETRIQ [Concomitant]
     Active Substance: MIRABEGRON
  6. CYMBALTA [Concomitant]
     Active Substance: DULOXETINE HYDROCHLORIDE
  7. GABAPENTIN [Concomitant]
     Active Substance: GABAPENTIN
  8. medicinal marijuana [Concomitant]
  9. walking sticks [Concomitant]
  10. VITAMIN D [Concomitant]
     Active Substance: VITAMIN D NOS
  11. VITAMINS [Concomitant]
     Active Substance: VITAMINS
  12. TYLENOL [Concomitant]
     Active Substance: ACETAMINOPHEN
  13. ADVIL [Concomitant]
     Active Substance: IBUPROFEN

REACTIONS (1)
  - Diarrhoea [None]

NARRATIVE: CASE EVENT DATE: 20200906
